FAERS Safety Report 15307249 (Version 1)
Quarter: 2018Q3

REPORT INFORMATION
  Report Type: Spontaneous
  Country: US (occurrence: US)
  Receive Date: 20180822
  Receipt Date: 20180822
  Transmission Date: 20181010
  Serious: Yes (Other)
  Sender: FDA-Public Use
  Company Number: US-PFIZER INC-2018336470

PATIENT
  Age: 62 Year
  Sex: Male
  Weight: 72.56 kg

DRUGS (2)
  1. ADVIL LIQUI?GELS [Suspect]
     Active Substance: IBUPROFEN
     Indication: PAIN
     Dosage: 2?4 IN A DAY
     Route: 048
  2. ADVIL LIQUI?GELS [Interacting]
     Active Substance: IBUPROFEN
     Dosage: 1 DF, UNK [I ONLY EAT ONE]
     Route: 048

REACTIONS (6)
  - Calculus urinary [Unknown]
  - Infection [Unknown]
  - Coagulation time prolonged [Unknown]
  - Drug interaction [Unknown]
  - Therapeutic response unexpected [Unknown]
  - Prostatomegaly [Unknown]

NARRATIVE: CASE EVENT DATE: 2016
